FAERS Safety Report 18639332 (Version 1)
Quarter: 2020Q4

REPORT INFORMATION
  Report Type: Report from Study
  Country: US (occurrence: US)
  Receive Date: 20201219
  Receipt Date: 20201219
  Transmission Date: 20210114
  Serious: Yes (Other)
  Sender: FDA-Public Use
  Company Number: US-TAKEDA-US201910203

PATIENT
  Age: 64 Year
  Sex: Female

DRUGS (2)
  1. HUMAN NORMAL IMMUNOGLOBULIN; LIQUID 20 [Suspect]
     Active Substance: HUMAN IMMUNOGLOBULIN G
     Indication: PRIMARY IMMUNODEFICIENCY SYNDROME
     Dosage: 25 GRAM, 1X/2WKS
     Route: 058
  2. HUMAN NORMAL IMMUNOGLOBULIN; LIQUID 20 [Suspect]
     Active Substance: HUMAN IMMUNOGLOBULIN G
     Dosage: 26 GRAM, 1X/2WKS
     Route: 058

REACTIONS (5)
  - Bronchitis [Recovered/Resolved]
  - Connective tissue disorder [Unknown]
  - Cataract operation [Unknown]
  - Sinusitis [Recovered/Resolved]
  - Limb operation [Unknown]

NARRATIVE: CASE EVENT DATE: 201810
